FAERS Safety Report 10677458 (Version 2)
Quarter: 2014Q4

REPORT INFORMATION
  Report Type: Spontaneous
  Country: US (occurrence: US)
  Receive Date: 20141227
  Receipt Date: 20141227
  Transmission Date: 20150529
  Serious: Yes (Other)
  Sender: FDA-Public Use
  Company Number: US-BAUSCH-SYM-2014-17795

PATIENT
  Age: 32 Year
  Sex: Female

DRUGS (2)
  1. XENAZINE [Suspect]
     Active Substance: TETRABENAZINE
     Indication: HUNTINGTON^S DISEASE
     Dosage: 1 TABLET, TWICE DAILY
     Route: 048
     Dates: start: 20140120
  2. XENAZINE [Suspect]
     Active Substance: TETRABENAZINE
     Dosage: 1 TABLET, ONCE DAILY
     Route: 048
     Dates: start: 20140207

REACTIONS (7)
  - Hand deformity [Unknown]
  - Treatment noncompliance [Unknown]
  - Memory impairment [Unknown]
  - Therapeutic response unexpected [Unknown]
  - Foot deformity [Unknown]
  - Fall [Recovering/Resolving]
  - Posture abnormal [Unknown]

NARRATIVE: CASE EVENT DATE: 20140120
